FAERS Safety Report 5833292-2 (Version None)
Quarter: 2008Q3

REPORT INFORMATION
  Report Type: 
  Country: None (occurrence: None)
  Receive Date: 20080804
  Receipt Date: 20080804
  Transmission Date: 20090109
  Serious: No
  Sender: FDA-Public Use
  Company Number: None

PATIENT
  Sex: Female
  Weight: 77.1115 kg

DRUGS (2)
  1. BONIVA [Suspect]
     Indication: OSTEOPOROSIS PROPHYLAXIS
     Dosage: 1 TABLET 1 MONTHLY
     Dates: start: 20080601
  2. BONIVA [Suspect]
     Indication: OSTEOPOROSIS PROPHYLAXIS
     Dosage: 1 TABLET 1 MONTHLY
     Dates: start: 20080701

REACTIONS (6)
  - DIARRHOEA [None]
  - DYSSTASIA [None]
  - MOBILITY DECREASED [None]
  - MYALGIA [None]
  - PAIN IN EXTREMITY [None]
  - STOMACH DISCOMFORT [None]
